FAERS Safety Report 17576847 (Version 1)
Quarter: 2020Q1

REPORT INFORMATION
  Report Type: Spontaneous
  Country: US (occurrence: US)
  Receive Date: 20200319
  Receipt Date: 20200319
  Transmission Date: 20200409
  Serious: Yes (Life-Threatening, Hospitalization)
  Sender: FDA-Public Use
  Company Number: None

PATIENT
  Age: 24 Year
  Sex: Female
  Weight: 96 kg

DRUGS (1)
  1. PROPOFOL (PROPOFOL 10MG/ML INJ,EMULSION) [Suspect]
     Active Substance: PROPOFOL
     Indication: PAIN
     Route: 042
     Dates: start: 20191018, end: 20191018

REACTIONS (1)
  - Pancreatitis [None]

NARRATIVE: CASE EVENT DATE: 20191105
